FAERS Safety Report 23718971 (Version 1)
Quarter: 2024Q2

REPORT INFORMATION
  Report Type: Spontaneous
  Country: CN (occurrence: CN)
  Receive Date: 20240408
  Receipt Date: 20240408
  Transmission Date: 20240717
  Serious: Yes (Life-Threatening, Hospitalization, Other)
  Sender: FDA-Public Use
  Company Number: CN-PFIZER INC-PV202400043893

PATIENT
  Age: 8 Year
  Sex: Male

DRUGS (5)
  1. SUNITINIB MALATE [Suspect]
     Active Substance: SUNITINIB MALATE
     Indication: Renal cell carcinoma
     Dosage: UNK, CYCLIC, SEVEN COURSES OF SINTILIMAB
  2. DOXORUBICIN HYDROCHLORIDE [Suspect]
     Active Substance: DOXORUBICIN HYDROCHLORIDE
     Indication: Renal cell carcinoma
     Dosage: UNK, CYCLIC
  3. SINTILIMAB [Suspect]
     Active Substance: SINTILIMAB
     Indication: Renal cell carcinoma
     Dosage: UNK, CYCLIC
  4. CYCLOPHOSPHAMIDE [Suspect]
     Active Substance: CYCLOPHOSPHAMIDE
     Indication: Renal cell carcinoma
     Dosage: UNK, CYCLIC
  5. PAZOPANIB [Concomitant]
     Active Substance: PAZOPANIB
     Indication: Renal cell carcinoma
     Dosage: UNK

REACTIONS (1)
  - Ascites [Unknown]
